FAERS Safety Report 7712156-3 (Version None)
Quarter: 2011Q3

REPORT INFORMATION
  Report Type: 
  Country: None (occurrence: None)
  Receive Date: 20110826
  Receipt Date: 20110826
  Transmission Date: 20111222
  Serious: Yes (Death)
  Sender: FDA-Public Use
  Company Number: IN-PFIZER INC-2011193843

PATIENT
  Weight: 0.93 kg

DRUGS (5)
  1. MAGNESIUM SULFATE [Concomitant]
  2. NORMODYNE [Suspect]
     Dosage: 200 MG /12 HOURLY
     Route: 064
  3. PROCARDIA [Suspect]
     Dosage: 20 MG/12 HOURLY SLOW RELEASE
     Route: 064
  4. ALDOMET [Suspect]
     Dosage: 500 MG 8-HOURLY
     Route: 064
  5. OXYTOCIN [Concomitant]

REACTIONS (2)
  - MATERNAL EXPOSURE DURING PREGNANCY [None]
  - PREMATURE BABY [None]
